FAERS Safety Report 14079767 (Version 5)
Quarter: 2019Q3

REPORT INFORMATION
  Report Type: Spontaneous
  Country: JP (occurrence: JP)
  Receive Date: 20171012
  Receipt Date: 20190903
  Transmission Date: 20191004
  Serious: Yes (Hospitalization)
  Sender: FDA-Public Use
  Company Number: JP-JNJFOC-20170407094

PATIENT
  Age: 78 Year
  Sex: Male
  Weight: 65 kg

DRUGS (17)
  1. XARELTO [Concomitant]
     Active Substance: RIVAROXABAN
     Route: 048
     Dates: start: 20121228
  2. AZILVA [Concomitant]
     Active Substance: AZILSARTAN KAMEDOXOMIL
     Route: 048
     Dates: start: 20141031
  3. MOHRUS [Concomitant]
     Active Substance: KETOPROFEN
     Route: 062
     Dates: start: 20140905
  4. SALOBEL [Concomitant]
     Active Substance: ALLOPURINOL
     Route: 048
     Dates: start: 20160722, end: 20180705
  5. BAYASPIRIN [Concomitant]
     Active Substance: ASPIRIN
     Dosage: START DATE: BEFORE 2009
     Route: 048
  6. ZETIA [Concomitant]
     Active Substance: EZETIMIBE
     Route: 048
     Dates: start: 20100219, end: 20170210
  7. SPIRONOLACTONE. [Concomitant]
     Active Substance: SPIRONOLACTONE
     Route: 048
     Dates: start: 20100917
  8. POTASSIUM CHLORIDE. [Concomitant]
     Active Substance: POTASSIUM CHLORIDE
     Route: 048
     Dates: start: 20101224, end: 201711
  9. GLORIAMIN                          /00518301/ [Concomitant]
     Dosage: DIVIDED INTO THREE DOSES
     Route: 048
     Dates: start: 20170721, end: 20180112
  10. ROSUVASTATIN. [Concomitant]
     Active Substance: ROSUVASTATIN
     Route: 048
     Dates: start: 20180123
  11. CANAGLU [Suspect]
     Active Substance: CANAGLIFLOZIN
     Indication: TYPE 2 DIABETES MELLITUS
     Route: 048
     Dates: start: 20160923, end: 20171115
  12. BISONO [Concomitant]
     Active Substance: BISOPROLOL
     Route: 062
     Dates: start: 20150130
  13. PANTETHINE [Concomitant]
     Active Substance: PANTETHINE
     Route: 048
     Dates: start: 20170721, end: 20180112
  14. URSODEOXYCHOLIC ACID [Concomitant]
     Active Substance: URSODIOL
     Route: 048
     Dates: start: 20170722, end: 20180112
  15. FRANDOL S [Concomitant]
     Active Substance: ISOSORBIDE DINITRATE
     Dosage: START DATE: BEFORE 2009
     Route: 062
  16. PITAVASTATIN CALCIUM [Concomitant]
     Active Substance: PITAVASTATIN CALCIUM
     Route: 048
     Dates: start: 20170210, end: 201711
  17. EXCELASE [Concomitant]
     Active Substance: PANCRELIPASE
     Route: 048
     Dates: start: 20170721, end: 20180112

REACTIONS (3)
  - Colon cancer [Recovering/Resolving]
  - Anaemia [Recovering/Resolving]
  - Spinal compression fracture [Recovering/Resolving]

NARRATIVE: CASE EVENT DATE: 20161118
